FAERS Safety Report 4407457-0 (Version None)
Quarter: 2004Q3

REPORT INFORMATION
  Report Type: 
  Country: None (occurrence: None)
  Receive Date: 20040721
  Receipt Date: 20040701
  Transmission Date: 20050211
  Serious: Yes (Hospitalization)
  Sender: FDA-Public Use
  Company Number: JP_040603435

PATIENT
  Age: 68 Year
  Sex: Male
  Weight: 65 kg

DRUGS (16)
  1. ONCOVIN [Suspect]
     Indication: LYMPHOMA
     Dosage: 1.8 MG OTHER
     Route: 050
     Dates: start: 20040204, end: 20040409
  2. CYCLOPHOSPHAMIDE [Concomitant]
  3. DOXORUBICIN HCL [Concomitant]
  4. RITUXAN [Concomitant]
  5. MADOPAR [Concomitant]
  6. SYMMETREL [Concomitant]
  7. SELEGILINE HYDROCHLORIDE [Concomitant]
  8. PERSELIN (ALLYESTRENOL) [Concomitant]
  9. FLIVAS (NAFTOPIDIL) [Concomitant]
  10. TOFRANIL [Concomitant]
  11. BUP-4 (PROPIVERINE HYDROCHLORIDE) [Concomitant]
  12. NORVASC [Concomitant]
  13. DIOVAN [Concomitant]
  14. LANSOPRAZOLE [Concomitant]
  15. MAGNESIUM OXIDE [Concomitant]
  16. SELBEX (TEPRENONE) [Concomitant]

REACTIONS (3)
  - INTERSTITIAL LUNG DISEASE [None]
  - PHARYNGOLARYNGEAL PAIN [None]
  - STOMATITIS [None]
